FAERS Safety Report 26009644 (Version 2)
Quarter: 2025Q4

REPORT INFORMATION
  Report Type: Spontaneous
  Country: US (occurrence: US)
  Receive Date: 20251107
  Receipt Date: 20251107
  Transmission Date: 20260117
  Serious: No
  Sender: HIKMA
  Company Number: US-HIKMA PHARMACEUTICALS USA INC.-US-H14001-24-03225

PATIENT
  Age: 77 Year
  Sex: Female
  Weight: 105.21 kg

DRUGS (3)
  1. FLUTICASONE PROPIONATE [Suspect]
     Active Substance: FLUTICASONE PROPIONATE
     Indication: Rhinorrhoea
     Dosage: 50 MICROGRAM, ONE TO TWO TIMES A DAY AS NEEDED
     Route: 045
     Dates: start: 2022, end: 20240417
  2. MUCINEX D [Concomitant]
     Active Substance: GUAIFENESIN\PSEUDOEPHEDRINE HYDROCHLORIDE
     Indication: Product used for unknown indication
     Dosage: UNKNOWN, 2-3 TIMES PER WEEK
     Route: 048
     Dates: end: 20240412
  3. ZICAM ALLERGY RELIEF [Concomitant]
     Active Substance: HOMEOPATHICS
     Indication: Product used for unknown indication
     Dosage: UNKNOWN, 2-3 TIMES PER WEEK
     Route: 048
     Dates: end: 20240412

REACTIONS (3)
  - Migraine [Recovered/Resolved]
  - Underdose [Recovered/Resolved]
  - Off label use [Recovered/Resolved]

NARRATIVE: CASE EVENT DATE: 20240101
